FAERS Safety Report 4793437-2 (Version None)
Quarter: 2006Q1

REPORT INFORMATION
  Report Type: 
  Country: None (occurrence: None)
  Receive Date: 20051011
  Receipt Date: 20041203
  Transmission Date: 20060701
  Serious: No
  Sender: FDA-Public Use
  Company Number: US-BRISTOL-MYERS SQUIBB COMPANY-12783874

PATIENT
  Age: 62 Year
  Sex: Male

DRUGS (3)
  1. GLUCOPHAGE XR [Suspect]
     Indication: DIABETES MELLITUS
     Route: 048
  2. EDTA [Suspect]
     Dates: start: 20040101
  3. AVANDAMET [Concomitant]

REACTIONS (1)
  - BLOOD GLUCOSE INCREASED [None]
